FAERS Safety Report 24704744 (Version 2)
Quarter: 2024Q4

REPORT INFORMATION
  Report Type: Spontaneous
  Country: JP (occurrence: JP)
  Receive Date: 20241206
  Receipt Date: 20241224
  Transmission Date: 20250114
  Serious: Yes (Other)
  Sender: BOEHRINGER INGELHEIM
  Company Number: JP-NBI-2024-BI-067122

PATIENT
  Age: 89 Year
  Sex: Male

DRUGS (2)
  1. DABIGATRAN ETEXILATE MESYLATE [Suspect]
     Active Substance: DABIGATRAN ETEXILATE MESYLATE
     Indication: Atrial fibrillation
     Route: 048
  2. DABIGATRAN ETEXILATE MESYLATE [Suspect]
     Active Substance: DABIGATRAN ETEXILATE MESYLATE
     Route: 048
     Dates: start: 20241129

REACTIONS (3)
  - Fall [Recovered/Resolved]
  - Haemorrhage intracranial [Recovered/Resolved]
  - Craniofacial fracture [Unknown]

NARRATIVE: CASE EVENT DATE: 20241126
